FAERS Safety Report 6185416-8 (Version None)
Quarter: 2009Q2

REPORT INFORMATION
  Report Type: 
  Country: None (occurrence: None)
  Receive Date: 20090511
  Receipt Date: 20090427
  Transmission Date: 20091009
  Serious: Yes (Hospitalization)
  Sender: FDA-Public Use
  Company Number: US-BAYER-200918915GPV

PATIENT
  Age: 80 Year
  Sex: Male
  Weight: 51 kg

DRUGS (9)
  1. SEIBULE [Suspect]
     Indication: TYPE 2 DIABETES MELLITUS
     Dosage: TOTAL DAILY DOSE: 49.8 MG
     Route: 048
     Dates: start: 20081127, end: 20090218
  2. MIGLITOL [Suspect]
     Indication: DRUG USE FOR UNKNOWN INDICATION
     Route: 048
     Dates: start: 20081127, end: 20090218
  3. ASPIRIN [Suspect]
     Indication: ARTERIOSCLEROSIS
     Dosage: TOTAL DAILY DOSE: 100 MG  UNIT DOSE: 100 MG
     Route: 048
     Dates: start: 20081227, end: 20090218
  4. LIPITOR [Suspect]
     Indication: HYPERCHOLESTEROLAEMIA
     Route: 048
     Dates: start: 20081119, end: 20090218
  5. PLAVIX [Suspect]
     Indication: ARTERIOSCLEROSIS
     Dosage: TOTAL DAILY DOSE: 75 MG  UNIT DOSE: 75 MG
     Route: 048
     Dates: start: 20081127, end: 20081226
  6. FAMOTIDINE [Suspect]
     Indication: PROPHYLAXIS AGAINST GASTROINTESTINAL ULCER
     Dosage: TOTAL DAILY DOSE: 10 MG  UNIT DOSE: 10 MG
     Route: 048
     Dates: start: 20081127, end: 20090218
  7. AMARYL [Suspect]
     Indication: TYPE 2 DIABETES MELLITUS
     Dosage: TOTAL DAILY DOSE: 1 MG  UNIT DOSE: 1 MG
     Route: 048
     Dates: start: 20081130, end: 20090218
  8. OPALMON [Suspect]
     Indication: SPINAL COLUMN STENOSIS
     Dosage: TOTAL DAILY DOSE: 4.98 ?G
     Route: 048
     Dates: start: 20070101, end: 20090218
  9. LANTUS [Concomitant]
     Indication: DRUG USE FOR UNKNOWN INDICATION
     Route: 065
     Dates: start: 20081119

REACTIONS (1)
  - THROMBOCYTOPENIA [None]
